FAERS Safety Report 5565050-0 (Version None)
Quarter: 2007Q4

REPORT INFORMATION
  Report Type: 
  Country: None (occurrence: None)
  Receive Date: 20071218
  Receipt Date: 20071213
  Transmission Date: 20080405
  Serious: Yes (Hospitalization, Disabling, Other)
  Sender: FDA-Public Use
  Company Number: DE-BRISTOL-MYERS SQUIBB COMPANY-13965694

PATIENT
  Age: 65 Year
  Sex: Male

DRUGS (4)
  1. COAPROVEL TABS 300MG/12.5MG [Suspect]
     Indication: HYPERTENSION
     Dosage: 1 DOSAGE FORM = 300MG/12.5MG
     Route: 048
     Dates: start: 20020701, end: 20061201
  2. PANTOPRAZOLE SODIUM [Concomitant]
     Indication: BARRETT'S OESOPHAGUS
     Route: 048
  3. MAGNESIUM CITRATE [Concomitant]
     Route: 048
  4. SYMBICORT [Concomitant]
     Route: 055

REACTIONS (3)
  - DYSGEUSIA [None]
  - WEIGHT DECREASED [None]
  - ZINC DEFICIENCY [None]
